FAERS Safety Report 25816138 (Version 1)
Quarter: 2025Q3

REPORT INFORMATION
  Report Type: Spontaneous
  Country: EU (occurrence: EU)
  Receive Date: 20250918
  Receipt Date: 20250918
  Transmission Date: 20251020
  Serious: Yes (Life-Threatening)
  Sender: TEVA
  Company Number: EU-TEVA-VS-3372606

PATIENT
  Age: 18 Year

DRUGS (2)
  1. QUETIAPINE [Suspect]
     Active Substance: QUETIAPINE
     Indication: Product used for unknown indication
     Dosage: DAILY DOSES-650 MG; DOSAGE UNKNOWN
     Route: 065
     Dates: start: 20220101
  2. TRAZODONE [Suspect]
     Active Substance: TRAZODONE HYDROCHLORIDE
     Indication: Product used for unknown indication
     Dosage: DAILY DOSE -1500 MG
     Route: 065
     Dates: start: 20220101

REACTIONS (4)
  - Somnolence [Recovered/Resolved]
  - Balance disorder [Recovered/Resolved]
  - Psychomotor skills impaired [Recovered/Resolved]
  - Confusional state [Recovered/Resolved]

NARRATIVE: CASE EVENT DATE: 20220101
